FAERS Safety Report 8047499-X (Version None)
Quarter: 2012Q1

REPORT INFORMATION
  Report Type: 
  Country: None (occurrence: None)
  Receive Date: 20120116
  Receipt Date: 20120109
  Transmission Date: 20120608
  Serious: Yes (Other)
  Sender: FDA-Public Use
  Company Number: US-PURDUE-USA-2012-0080592

PATIENT
  Sex: Male

DRUGS (1)
  1. OXYCONTIN [Suspect]
     Indication: PRODUCT USED FOR UNKNOWN INDICATION
     Dosage: 120 MG, BID
     Route: 048

REACTIONS (4)
  - JAW FRACTURE [None]
  - HYPOAESTHESIA [None]
  - FACIAL BONES FRACTURE [None]
  - ROAD TRAFFIC ACCIDENT [None]
